FAERS Safety Report 24929339 (Version 2)
Quarter: 2025Q1

REPORT INFORMATION
  Report Type: Spontaneous
  Country: CA (occurrence: CA)
  Receive Date: 20250205
  Receipt Date: 20250211
  Transmission Date: 20250409
  Serious: Yes (Other)
  Sender: NOVARTIS
  Company Number: CA-002147023-NVSC2025CA018042

PATIENT
  Age: 2 Year
  Weight: 15 kg

DRUGS (1)
  1. ALPELISIB [Suspect]
     Active Substance: ALPELISIB
     Indication: PIK3CA related overgrowth spectrum
     Route: 065

REACTIONS (3)
  - Growth failure [Unknown]
  - Vomiting [Unknown]
  - Hypertransaminasaemia [Unknown]
